FAERS Safety Report 24078179 (Version 1)
Quarter: 2024Q3

REPORT INFORMATION
  Report Type: Spontaneous
  Country: IT (occurrence: IT)
  Receive Date: 20240711
  Receipt Date: 20240711
  Transmission Date: 20241016
  Serious: Yes (Life-Threatening, Hospitalization, Other)
  Sender: MERCK
  Company Number: None

PATIENT
  Age: 81 Year
  Sex: Female
  Weight: 57 kg

DRUGS (1)
  1. PEMBROLIZUMAB [Suspect]
     Active Substance: PEMBROLIZUMAB
     Indication: Lung adenocarcinoma
     Dosage: 200 MG, Q21
     Route: 042
     Dates: start: 20240319, end: 20240319

REACTIONS (3)
  - Acute kidney injury [Recovered/Resolved]
  - Respiratory failure [Recovered/Resolved]
  - Immune-mediated pancreatitis [Recovered/Resolved]

NARRATIVE: CASE EVENT DATE: 20240326
